FAERS Safety Report 16787952 (Version 2)
Quarter: 2019Q3

REPORT INFORMATION
  Report Type: Report from Study
  Country: US (occurrence: US)
  Receive Date: 20190909
  Receipt Date: 20190917
  Transmission Date: 20191005
  Serious: Yes (Hospitalization)
  Sender: FDA-Public Use
  Company Number: US-ACTELION-A-NJ2019-186782

PATIENT
  Age: 75 Year
  Sex: Female
  Weight: 44.9 kg

DRUGS (6)
  1. ADCIRCA [Concomitant]
     Active Substance: TADALAFIL
  2. UPTRAVI [Suspect]
     Active Substance: SELEXIPAG
     Dosage: 1000 MCG, BID
     Route: 048
  3. UPTRAVI [Suspect]
     Active Substance: SELEXIPAG
     Indication: PULMONARY ARTERIAL HYPERTENSION
     Dosage: 200 MCG, BID
     Route: 048
  4. LETAIRIS [Concomitant]
     Active Substance: AMBRISENTAN
  5. UPTRAVI [Suspect]
     Active Substance: SELEXIPAG
     Dosage: 400 MCG, BID
     Route: 048
  6. UPTRAVI [Suspect]
     Active Substance: SELEXIPAG
     Dosage: 1600 MCG, BID
     Route: 048

REACTIONS (19)
  - Infection [Unknown]
  - Nasopharyngitis [Unknown]
  - Frequent bowel movements [Unknown]
  - Feeling hot [Recovered/Resolved]
  - Erythema [Unknown]
  - Pain [Unknown]
  - Inflammation [Unknown]
  - Cellulitis [Unknown]
  - Adverse event [Unknown]
  - Hospitalisation [Unknown]
  - Calcinosis [Unknown]
  - Peripheral swelling [Unknown]
  - Headache [Unknown]
  - Viral infection [Recovering/Resolving]
  - Wound drainage [Unknown]
  - Influenza [Recovering/Resolving]
  - Malaise [Recovering/Resolving]
  - Body temperature increased [Recovered/Resolved]
  - Diarrhoea [Unknown]

NARRATIVE: CASE EVENT DATE: 20190210
